FAERS Safety Report 19781792 (Version 1)
Quarter: 2021Q3

REPORT INFORMATION
  Report Type: Spontaneous
  Country: US (occurrence: US)
  Receive Date: 20210902
  Receipt Date: 20210902
  Transmission Date: 20211014
  Serious: No
  Sender: FDA-Public Use
  Company Number: US-ENDO PHARMACEUTICALS INC-2021-009971

PATIENT
  Sex: Female
  Weight: 65.32 kg

DRUGS (1)
  1. PREDNISONE. [Suspect]
     Active Substance: PREDNISONE
     Indication: PRODUCT USED FOR UNKNOWN INDICATION
     Dosage: 6 THE FIRST DAY, 5 THE NEXT, THEN 4, THEN 3, 2, 1, UNKNOWN
     Route: 065

REACTIONS (1)
  - Heart rate increased [Unknown]
